FAERS Safety Report 15620338 (Version 1)
Quarter: 2018Q4

REPORT INFORMATION
  Report Type: Spontaneous
  Country: DE (occurrence: DE)
  Receive Date: 20181115
  Receipt Date: 20181115
  Transmission Date: 20190205
  Serious: Yes (Other)
  Sender: FDA-Public Use
  Company Number: DE-SUN PHARMACEUTICAL INDUSTRIES LTD-2018RR-190623

PATIENT
  Sex: Female
  Weight: 90 kg

DRUGS (6)
  1. METOHEXAL SUCC 47,5 MG RET. TABLETTEN [Concomitant]
     Indication: PRODUCT USED FOR UNKNOWN INDICATION
     Dosage: UNK
     Route: 065
  2. RAMIPRIL ISIS 2,5 MG [Concomitant]
     Indication: PRODUCT USED FOR UNKNOWN INDICATION
     Dosage: UNK
     Route: 065
  3. LETROZOL SUN 2,5 MG FILMTABLETTEN [Suspect]
     Active Substance: LETROZOLE
     Indication: PRODUCT USED FOR UNKNOWN INDICATION
     Dosage: 1X/DAY
     Route: 065
     Dates: start: 2015
  4. PANTOPRAZOLE [Concomitant]
     Active Substance: PANTOPRAZOLE
     Indication: PRODUCT USED FOR UNKNOWN INDICATION
     Dosage: UNK
     Route: 065
  5. AIRFLUSAL FORSPIRO 50/500 UG/DOSIS 60 HUB INH.P [Concomitant]
     Indication: PRODUCT USED FOR UNKNOWN INDICATION
     Dosage: UNK
     Route: 065
  6. ELONTRIL 150 MG FILMTABLETTEN [Concomitant]
     Indication: PRODUCT USED FOR UNKNOWN INDICATION
     Dosage: UNK
     Route: 065

REACTIONS (20)
  - Irritability [Unknown]
  - Dry mouth [Unknown]
  - Nasal dryness [Unknown]
  - Cough [Unknown]
  - Fatigue [Unknown]
  - Myalgia [Unknown]
  - Arthralgia [Unknown]
  - Dry skin [Unknown]
  - Memory impairment [Unknown]
  - Insomnia [Unknown]
  - Respiratory distress [Unknown]
  - Weight increased [Unknown]
  - Asthenia [Unknown]
  - Dizziness [Unknown]
  - Productive cough [Unknown]
  - Hyperhidrosis [Unknown]
  - Malaise [Unknown]
  - Nausea [Unknown]
  - Decreased appetite [Unknown]
  - Depression [Unknown]
